FAERS Safety Report 4748726-4 (Version None)
Quarter: 2005Q3

REPORT INFORMATION
  Report Type: 
  Country: None (occurrence: None)
  Receive Date: 20050817
  Receipt Date: 20050804
  Transmission Date: 20060218
  Serious: Yes (Hospitalization, Other)
  Sender: FDA-Public Use
  Company Number: 2005108559

PATIENT
  Sex: Female
  Weight: 77.1115 kg

DRUGS (5)
  1. DETROL LA [Suspect]
     Indication: HYPERTONIC BLADDER
     Dosage: 4 MG (4MG, 1 IN 1 D), ORAL
     Route: 048
  2. ANTICOAGULANTS (ANTITHROMBOTIC AGENTS) [Suspect]
     Indication: THROMBOSIS
  3. LESCOL [Concomitant]
  4. PRILOSEC [Concomitant]
  5. REMERON [Concomitant]

REACTIONS (22)
  - ASTHENIA [None]
  - BRAIN DAMAGE [None]
  - CERVICAL VERTEBRAL FRACTURE [None]
  - CLAVICLE FRACTURE [None]
  - CONSTIPATION [None]
  - DRUG INEFFECTIVE [None]
  - HAEMORRHAGE [None]
  - HAEMORRHAGE URINARY TRACT [None]
  - HEAD INJURY [None]
  - JOINT INJURY [None]
  - JOINT SWELLING [None]
  - LIMB INJURY [None]
  - LOSS OF CONSCIOUSNESS [None]
  - MOVEMENT DISORDER [None]
  - MUSCLE HAEMORRHAGE [None]
  - PELVIC FRACTURE [None]
  - POLYTRAUMATISM [None]
  - RIB FRACTURE [None]
  - ROAD TRAFFIC ACCIDENT [None]
  - TENDON DISORDER [None]
  - TENDONITIS [None]
  - THROMBOSIS [None]
